FAERS Safety Report 12543909 (Version 1)
Quarter: 2016Q3

REPORT INFORMATION
  Report Type: Spontaneous
  Country: CA (occurrence: CA)
  Receive Date: 20160711
  Receipt Date: 20160711
  Transmission Date: 20161109
  Serious: Yes (Other)
  Sender: FDA-Public Use
  Company Number: CA-BAUSCH-BL-2016-016239

PATIENT
  Age: 61 Year
  Sex: Male
  Weight: 72.64 kg

DRUGS (3)
  1. APO-ESOMEPRAZOLE [Concomitant]
     Active Substance: ESOMEPRAZOLE
     Indication: PRODUCT USED FOR UNKNOWN INDICATION
  2. TEVA-ROSUVASTATIN [Concomitant]
     Indication: PRODUCT USED FOR UNKNOWN INDICATION
  3. ZYCLARA [Suspect]
     Active Substance: IMIQUIMOD
     Indication: ACTINIC KERATOSIS
     Route: 065

REACTIONS (7)
  - Decreased appetite [Recovering/Resolving]
  - Amnesia [Recovering/Resolving]
  - Wound [Recovering/Resolving]
  - Fatigue [Recovering/Resolving]
  - Nasal oedema [Recovering/Resolving]
  - Eyelid oedema [Recovering/Resolving]
  - Weight decreased [Recovering/Resolving]
